FAERS Safety Report 9886530 (Version 2)
Quarter: 2014Q3

REPORT INFORMATION
  Report Type: Spontaneous
  Country: US (occurrence: US)
  Receive Date: 20140210
  Receipt Date: 20140814
  Transmission Date: 20150326
  Serious: Yes (Other)
  Sender: FDA-Public Use
  Company Number: US-009507513-1402USA004207

PATIENT
  Sex: Female

DRUGS (1)
  1. NUVARING [Suspect]
     Active Substance: ETHINYL ESTRADIOL\ETONOGESTREL
     Indication: CONTRACEPTION
     Dosage: 3 WEEKS IN, 1 WEEK OUT
     Route: 067
     Dates: end: 20050404

REACTIONS (6)
  - Lymphoproliferative disorder [Unknown]
  - Phlebitis superficial [Unknown]
  - Lymphadenopathy [Unknown]
  - Deep vein thrombosis [Unknown]
  - Metastatic neoplasm [Unknown]
  - Limb operation [Unknown]

NARRATIVE: CASE EVENT DATE: 20050404
